FAERS Safety Report 8920907 (Version 2)
Quarter: 2012Q4

REPORT INFORMATION
  Report Type: 
  Country: NL (occurrence: NL)
  Receive Date: 20121121
  Receipt Date: 20121214
  Transmission Date: 20130627
  Serious: Yes (Other)
  Sender: FDA-Public Use
  Company Number: NL-009507513-1211NLD007711

PATIENT
  Age: 19 Year
  Sex: Female

DRUGS (2)
  1. IMPLANON NXT [Suspect]
     Indication: CONTRACEPTION
     Dosage: UNK
     Route: 058
     Dates: start: 20111117
  2. MIRENA [Concomitant]
     Indication: CONTRACEPTION
     Dosage: UNK
     Route: 015
     Dates: start: 20121102

REACTIONS (3)
  - Abortion [Recovered/Resolved]
  - Unintended pregnancy [Recovered/Resolved]
  - Medical device complication [Unknown]
